FAERS Safety Report 25892133 (Version 1)
Quarter: 2025Q4

REPORT INFORMATION
  Report Type: Spontaneous
  Country: US (occurrence: US)
  Receive Date: 20251007
  Receipt Date: 20251007
  Transmission Date: 20260118
  Serious: No
  Sender: INTRABIO
  Company Number: US-IBO-202500192

PATIENT

DRUGS (1)
  1. AQNEURSA [Suspect]
     Active Substance: LEVACETYLLEUCINE
     Indication: Niemann-Pick disease
     Route: 065

REACTIONS (7)
  - Clumsiness [Unknown]
  - Brain fog [Unknown]
  - Disturbance in attention [Unknown]
  - Gait disturbance [Unknown]
  - Poor quality sleep [Unknown]
  - Restlessness [Unknown]
  - Sleep disorder [Unknown]
